FAERS Safety Report 6867306-8 (Version None)
Quarter: 2010Q3

REPORT INFORMATION
  Report Type: 
  Country: None (occurrence: None)
  Receive Date: 20100721
  Receipt Date: 20100721
  Transmission Date: 20110219
  Serious: Yes (Life-Threatening)
  Sender: FDA-Public Use
  Company Number: None

PATIENT
  Sex: Female
  Weight: 58.9676 kg

DRUGS (1)
  1. XANAX [Suspect]
     Dosage: 1MG 3 A DAY SEVERAL YEARS

REACTIONS (5)
  - COMA [None]
  - DRUG EFFECT DECREASED [None]
  - NERVOUS SYSTEM DISORDER [None]
  - PRODUCT QUALITY ISSUE [None]
  - ROAD TRAFFIC ACCIDENT [None]
